FAERS Safety Report 4727788-4 (Version None)
Quarter: 2005Q3

REPORT INFORMATION
  Report Type: 
  Country: None (occurrence: None)
  Receive Date: 20050727
  Receipt Date: 20050610
  Transmission Date: 20060218
  Serious: Yes (Death)
  Sender: FDA-Public Use
  Company Number: 2005JP001443

PATIENT
  Age: 8 Year
  Sex: Female

DRUGS (3)
  1. PROGRAF [Suspect]
     Indication: STEM CELL TRANSPLANT
     Dates: start: 20030728, end: 20030101
  2. PROGRAF [Suspect]
     Indication: STEM CELL TRANSPLANT
     Dates: start: 20020901, end: 20030701
  3. COTRIM [Concomitant]

REACTIONS (13)
  - ASPERGILLOSIS [None]
  - BILIARY TRACT DISORDER [None]
  - CHOLESTASIS [None]
  - DRUG ERUPTION [None]
  - ERYTHEMA MULTIFORME [None]
  - EYE DISCHARGE [None]
  - GASTROINTESTINAL HAEMORRHAGE [None]
  - GENERAL PHYSICAL HEALTH DETERIORATION [None]
  - GENERALISED ERYTHEMA [None]
  - GRAFT VERSUS HOST DISEASE [None]
  - PYREXIA [None]
  - STEVENS-JOHNSON SYNDROME [None]
  - THERAPY NON-RESPONDER [None]
